FAERS Safety Report 24872573 (Version 1)
Quarter: 2025Q1

REPORT INFORMATION
  Report Type: Spontaneous
  Country: US (occurrence: US)
  Receive Date: 20250122
  Receipt Date: 20250122
  Transmission Date: 20250408
  Serious: Yes (Hospitalization, Other)
  Sender: COOPERSURGICAL
  Company Number: US-COOPERSURGICAL, INC.-2025CPS000203

PATIENT
  Age: 33 Year
  Sex: Female
  Weight: 77.098 kg

DRUGS (1)
  1. PARAGARD T 380A [Suspect]
     Active Substance: COPPER
     Indication: Contraception
     Route: 015
     Dates: start: 20140912

REACTIONS (32)
  - Sepsis [Recovered/Resolved]
  - Enterococcal infection [Recovered/Resolved]
  - Stenotrophomonas infection [Recovered/Resolved]
  - Surgery [Recovered/Resolved]
  - Laparotomy [Recovered/Resolved]
  - Gastrointestinal injury [Recovered/Resolved]
  - Intestinal mucosal tear [Recovered/Resolved]
  - Cellulitis [Unknown]
  - Fistula [Recovered/Resolved]
  - Uterine leiomyoma [Unknown]
  - Device breakage [Unknown]
  - Foreign body in reproductive tract [Unknown]
  - Complication of device removal [Unknown]
  - Pelvic abscess [Recovered/Resolved]
  - Pelvic inflammatory disease [Recovered/Resolved]
  - Retroperitoneal abscess [Recovered/Resolved]
  - Rectal abscess [Recovered/Resolved]
  - Ileus [Recovered/Resolved]
  - Infection [Unknown]
  - Procedural pain [Recovered/Resolved]
  - Constipation [Recovered/Resolved]
  - Malaise [Recovered/Resolved]
  - Candida infection [Recovered/Resolved]
  - Escherichia infection [Recovered/Resolved]
  - Streptococcal infection [Recovered/Resolved]
  - Scar [Not Recovered/Not Resolved]
  - Uterine inflammation [Recovered/Resolved]
  - Tachycardia [Recovered/Resolved]
  - Device dislocation [Recovered/Resolved]
  - Pain [Recovered/Resolved]
  - Abdominal pain [Recovered/Resolved]
  - Unevaluable event [Unknown]

NARRATIVE: CASE EVENT DATE: 20210629
